FAERS Safety Report 15044662 (Version 2)
Quarter: 2018Q2

REPORT INFORMATION
  Report Type: Spontaneous
  Country: TH (occurrence: TH)
  Receive Date: 20180621
  Receipt Date: 20180626
  Transmission Date: 20180711
  Serious: Yes (Other)
  Sender: FDA-Public Use
  Company Number: PHHY2018TH023680

PATIENT
  Age: 77 Year
  Sex: Female

DRUGS (2)
  1. ZYKADIA [Suspect]
     Active Substance: CERITINIB
     Indication: PRODUCT USED FOR UNKNOWN INDICATION
     Dosage: 750 MG, QD
     Route: 065
     Dates: start: 201610
  2. ZYKADIA [Suspect]
     Active Substance: CERITINIB
     Dosage: 600 MG, UNK
     Route: 065

REACTIONS (4)
  - Alanine aminotransferase increased [Unknown]
  - Leukopenia [Unknown]
  - Neutropenia [Unknown]
  - Aspartate aminotransferase increased [Unknown]
